FAERS Safety Report 10510410 (Version 3)
Quarter: 2017Q1

REPORT INFORMATION
  Report Type: Spontaneous
  Country: BR (occurrence: BR)
  Receive Date: 20141010
  Receipt Date: 20170106
  Transmission Date: 20170428
  Serious: Yes (Death, Hospitalization)
  Sender: FDA-Public Use
  Company Number: BR-SA-2014SA135985

PATIENT
  Age: 49 Year
  Sex: Male

DRUGS (1)
  1. FABRAZYME [Suspect]
     Active Substance: AGALSIDASE BETA
     Indication: FABRY^S DISEASE
     Route: 041
     Dates: start: 20140925, end: 20140925

REACTIONS (9)
  - Death [Fatal]
  - Haemorrhagic stroke [Unknown]
  - Limb injury [Unknown]
  - Fall [Unknown]
  - Pain [Unknown]
  - Pyrexia [Unknown]
  - Cardiac arrest [Unknown]
  - Cardiac failure [Unknown]
  - Pneumonia [Unknown]

NARRATIVE: CASE EVENT DATE: 2014
